FAERS Safety Report 8619566-0 (Version None)
Quarter: 2012Q3

REPORT INFORMATION
  Report Type: 
  Country: None (occurrence: None)
  Receive Date: 20120824
  Receipt Date: 20120412
  Transmission Date: 20120928
  Serious: No
  Sender: FDA-Public Use
  Company Number: US-ASTRAZENECA-2012SE24173

PATIENT
  Age: 39 Year
  Sex: Female

DRUGS (2)
  1. ALBUTEROL [Concomitant]
     Indication: ASTHMA
  2. SYMBICORT [Suspect]
     Indication: ASTHMA
     Route: 055

REACTIONS (1)
  - HAIR GROWTH ABNORMAL [None]
